FAERS Safety Report 4475302-3 (Version None)
Quarter: 2004Q4

REPORT INFORMATION
  Report Type: 
  Country: None (occurrence: None)
  Receive Date: 20041012
  Receipt Date: 20040929
  Transmission Date: 20050328
  Serious: Yes (Death, Other)
  Sender: FDA-Public Use
  Company Number: 2004236557US

PATIENT
  Sex: Female

DRUGS (1)
  1. CELEBREX [Suspect]
     Indication: ARTHRALGIA
     Dosage: PRN

REACTIONS (3)
  - ABASIA [None]
  - BRAIN NEOPLASM [None]
  - GENERAL PHYSICAL HEALTH DETERIORATION [None]
